FAERS Safety Report 6249329-5 (Version None)
Quarter: 2009Q2

REPORT INFORMATION
  Report Type: 
  Country: None (occurrence: None)
  Receive Date: 20090624
  Receipt Date: 20090624
  Transmission Date: 20091009
  Serious: Yes (Other)
  Sender: FDA-Public Use
  Company Number: None

PATIENT
  Age: 76 Year
  Sex: Female
  Weight: 70.3075 kg

DRUGS (1)
  1. GLIPIZIDE [Suspect]
     Indication: TYPE 2 DIABETES MELLITUS
     Dosage: 1 TAB 2 TIMES PER DAY PO
     Route: 048
     Dates: start: 20090110, end: 20090510

REACTIONS (1)
  - ABDOMINAL DISCOMFORT [None]
